FAERS Safety Report 5417930-4 (Version None)
Quarter: 2007Q3

REPORT INFORMATION
  Report Type: 
  Country: None (occurrence: None)
  Receive Date: 20070815
  Receipt Date: 20070806
  Transmission Date: 20080115
  Serious: Yes (Hospitalization)
  Sender: FDA-Public Use
  Company Number: GXKR2007GB06774

PATIENT
  Sex: Male

DRUGS (3)
  1. AMOXICILLIN AND CLAVULANATE POTASSIUM [Suspect]
     Dosage: QID, ORAL
     Route: 048
     Dates: start: 20070723, end: 20070729
  2. WARFARIN SODIUM [Suspect]
     Dosage: ORAL
     Route: 048
  3. MICONAZOLE [Suspect]
     Dosage: QID, BUCCAL
     Route: 002
     Dates: start: 20070712, end: 20070723

REACTIONS (3)
  - DRUG INTERACTION [None]
  - HAEMATURIA [None]
  - INTERNATIONAL NORMALISED RATIO INCREASED [None]
